FAERS Safety Report 7827470-0 (Version None)
Quarter: 2011Q4

REPORT INFORMATION
  Report Type: 
  Country: None (occurrence: None)
  Receive Date: 20111020
  Receipt Date: 20111012
  Transmission Date: 20120403
  Serious: Yes (Other)
  Sender: FDA-Public Use
  Company Number: DE-AMGEN-DEUNI2011028055

PATIENT
  Age: 54 Year
  Sex: Male

DRUGS (4)
  1. NEULASTA [Suspect]
     Indication: FEBRILE NEUTROPENIA
  2. ALEMTUZUMAB [Concomitant]
     Dosage: 30 MG, UNK
     Route: 058
  3. DEXAMETHASONE [Concomitant]
     Dosage: 40 MG, UNK
     Route: 048
  4. NEULASTA [Suspect]
     Indication: NEUTROPENIA
     Dosage: 6 MG, 2 TIMES/WK

REACTIONS (4)
  - LUNG INFILTRATION [None]
  - C-REACTIVE PROTEIN INCREASED [None]
  - PYREXIA [None]
  - COUGH [None]
